FAERS Safety Report 4329864-7 (Version None)
Quarter: 2004Q1

REPORT INFORMATION
  Report Type: 
  Country: None (occurrence: None)
  Receive Date: 20040329
  Receipt Date: 20040315
  Transmission Date: 20041129
  Serious: Yes (Other)
  Sender: FDA-Public Use
  Company Number: 2004204236AU

PATIENT
  Age: 31 Year
  Sex: Female

DRUGS (4)
  1. DEPO-PROVERA [Suspect]
  2. XANAX [Suspect]
     Indication: DEPRESSION
  3. VITAMIN B COMPLEX CAP [Concomitant]
  4. HERBAL ONT [Concomitant]

REACTIONS (3)
  - BREAST PAIN [None]
  - BREAST TENDERNESS [None]
  - DEPRESSION [None]
